FAERS Safety Report 4764186-1 (Version None)
Quarter: 2005Q3

REPORT INFORMATION
  Report Type: 
  Country: None (occurrence: None)
  Receive Date: 20050902
  Receipt Date: 20050315
  Transmission Date: 20060218
  Serious: Yes (Other)
  Sender: FDA-Public Use
  Company Number: 004385

PATIENT
  Sex: Female

DRUGS (1)
  1. PLAN B [Suspect]
     Indication: CONTRACEPTION

REACTIONS (1)
  - ECTOPIC PREGNANCY [None]
